FAERS Safety Report 24981993 (Version 1)
Quarter: 2025Q1

REPORT INFORMATION
  Report Type: Other
  Country: IN (occurrence: IN)
  Receive Date: 20250218
  Receipt Date: 20250218
  Transmission Date: 20250409
  Serious: Yes (Other)
  Sender: COREPHARMA LLC
  Company Number: IN-CorePharma LLC-2171276

PATIENT
  Age: 6 Decade
  Sex: Female

DRUGS (3)
  1. DEXAMETHASONE [Suspect]
     Active Substance: DEXAMETHASONE
     Indication: Product used for unknown indication
  2. MITOMYCIN [Suspect]
     Active Substance: MITOMYCIN
  3. GENTAMICIN [Suspect]
     Active Substance: GENTAMICIN

REACTIONS (2)
  - Corneal epithelial microcysts [Recovering/Resolving]
  - Product administered at inappropriate site [Unknown]
